FAERS Safety Report 24911191 (Version 1)
Quarter: 2025Q1

REPORT INFORMATION
  Report Type: Spontaneous
  Country: US (occurrence: None)
  Receive Date: 20250131
  Receipt Date: 20250131
  Transmission Date: 20250409
  Serious: Yes (Other)
  Sender: FDA-CTU
  Company Number: None

PATIENT
  Age: 10 Year
  Sex: Female
  Weight: 39.4 kg

DRUGS (2)
  1. ONYDA XR [Suspect]
     Active Substance: CLONIDINE HYDROCHLORIDE
     Indication: Sleep disorder
     Dosage: 1.5 ML AT BEDTIME ORAL
     Route: 048
     Dates: start: 20250108
  2. CLONIDINE [Suspect]
     Active Substance: CLONIDINE

REACTIONS (3)
  - Angina pectoris [None]
  - Dizziness [None]
  - Chest pain [None]

NARRATIVE: CASE EVENT DATE: 20250120
